FAERS Safety Report 11550867 (Version 1)
Quarter: 2015Q3

REPORT INFORMATION
  Report Type: Spontaneous
  Country: US (occurrence: US)
  Receive Date: 20150925
  Receipt Date: 20150925
  Transmission Date: 20151125
  Serious: No
  Sender: FDA-Public Use
  Company Number: US-BRISTOL-MYERS SQUIBB COMPANY-16189870

PATIENT
  Age: 35 Year
  Sex: Female

DRUGS (5)
  1. HAWTHORN BERRY EXTRACT [Interacting]
     Active Substance: CRATAEGUS DOUGLASII FRUIT
     Indication: PRODUCT USED FOR UNKNOWN INDICATION
     Dosage: 1DF:0.5 TEASPOON
     Route: 065
     Dates: start: 200803
  2. ALOE VERA [Interacting]
     Active Substance: ALOE VERA LEAF
     Indication: THROMBOSIS PROPHYLAXIS
     Dosage: 1DF:1 CUP
     Route: 065
     Dates: start: 20080519
  3. OMEGA 3 FATTY ACID [Interacting]
     Active Substance: OMEGA-3 FATTY ACIDS
     Indication: PRODUCT USED FOR UNKNOWN INDICATION
     Dosage: UNK
     Route: 065
     Dates: start: 200803
  4. BUTCHER BROOM [Interacting]
     Active Substance: RUSCUS ACULEATUS ROOT
     Indication: PRODUCT USED FOR UNKNOWN INDICATION
     Dosage: 1DF:1 TEASPOON
     Route: 065
     Dates: start: 200803
  5. WARFARIN SODIUM. [Suspect]
     Active Substance: WARFARIN SODIUM
     Indication: PULMONARY EMBOLISM
     Dosage: 75-80 MG, QWK
     Route: 065

REACTIONS (4)
  - International normalised ratio decreased [Unknown]
  - Normal newborn [Unknown]
  - Drug interaction [Unknown]
  - Maternal exposure during pregnancy [Recovered/Resolved]

NARRATIVE: CASE EVENT DATE: 200707
